FAERS Safety Report 25927270 (Version 1)
Quarter: 2025Q4

REPORT INFORMATION
  Report Type: Spontaneous
  Country: EU (occurrence: EU)
  Receive Date: 20251015
  Receipt Date: 20251015
  Transmission Date: 20260117
  Serious: Yes (Other)
  Sender: MERCK SHARP & DOHME LLC
  Company Number: None

PATIENT
  Age: 70 Year
  Sex: Female

DRUGS (4)
  1. SIVEXTRO [Interacting]
     Active Substance: TEDIZOLID PHOSPHATE
     Indication: Endocarditis
     Route: 048
     Dates: start: 20250613, end: 20250718
  2. CEFTAROLINE FOSAMIL [Interacting]
     Active Substance: CEFTAROLINE FOSAMIL
     Indication: Endocarditis
     Route: 042
     Dates: start: 20250602, end: 20250613
  3. ORITAVANCIN DIPHOSPHATE [Interacting]
     Active Substance: ORITAVANCIN DIPHOSPHATE
     Indication: Endocarditis
     Route: 042
     Dates: start: 20250613, end: 20250718
  4. DAPTOMYCIN [Interacting]
     Active Substance: DAPTOMYCIN
     Indication: Endocarditis
     Route: 042
     Dates: start: 20250602, end: 20250613

REACTIONS (1)
  - Dental caries [Recovered/Resolved with Sequelae]

NARRATIVE: CASE EVENT DATE: 20250710
